FAERS Safety Report 9083034 (Version 1)
Quarter: 2013Q1

REPORT INFORMATION
  Report Type: Report from Study
  Country: US (occurrence: US)
  Receive Date: 20130131
  Receipt Date: 20130131
  Transmission Date: 20140127
  Serious: No
  Sender: FDA-Public Use
  Company Number: US-ABBOTT-12P-163-0991397-00

PATIENT
  Age: 69 Year
  Sex: Female

DRUGS (6)
  1. HUMIRA [Suspect]
     Indication: RHEUMATOID ARTHRITIS
  2. MELOXICAM [Concomitant]
     Indication: ARTHRITIS
     Dosage: 7.5MG DAILY
  3. METHOTREXATE [Concomitant]
     Indication: ARTHRITIS
     Dosage: 6 TABLETS ONCE A WEEK
  4. PREDNISONE [Concomitant]
     Indication: ARTHRITIS
     Dosage: 3MG DAILY
  5. FOLIC ACID [Concomitant]
     Indication: PRODUCT USED FOR UNKNOWN INDICATION
     Dosage: 1MG DAILY
  6. BISOPROLOL HCTZ [Concomitant]
     Indication: HYPERTENSION

REACTIONS (1)
  - Injection site pain [Recovered/Resolved]
